FAERS Safety Report 23200250 (Version 2)
Quarter: 2025Q3

REPORT INFORMATION
  Report Type: Spontaneous
  Country: US (occurrence: US)
  Receive Date: 20231118
  Receipt Date: 20250702
  Transmission Date: 20251020
  Serious: No
  Sender: SANOFI AVENTIS
  Company Number: US-SA-SAC20231111000227

PATIENT
  Age: 27 Year
  Sex: Male
  Weight: 86.18 kg

DRUGS (5)
  1. DUPIXENT [Suspect]
     Active Substance: DUPILUMAB
     Indication: Eosinophilic oesophagitis
     Dosage: 300 MG, QW
     Route: 058
     Dates: start: 202308
  2. DUPIXENT [Suspect]
     Active Substance: DUPILUMAB
     Indication: Eosinophilic oesophagitis
     Dosage: 300 MG, QOW
     Route: 058
  3. PREVACID [Concomitant]
     Active Substance: LANSOPRAZOLE
  4. FLUTICASONE PROPIONATE HFA [Concomitant]
     Active Substance: FLUTICASONE PROPIONATE
  5. CLARITIN [Concomitant]
     Active Substance: LORATADINE

REACTIONS (18)
  - Injection site urticaria [Recovered/Resolved]
  - Condition aggravated [Recovered/Resolved]
  - Throat tightness [Unknown]
  - Dysphagia [Unknown]
  - Balance disorder [Not Recovered/Not Resolved]
  - Dyspnoea [Recovering/Resolving]
  - Eosinophil count decreased [Unknown]
  - Throat irritation [Recovering/Resolving]
  - Drainage [Recovering/Resolving]
  - Swelling [Not Recovered/Not Resolved]
  - Contusion [Not Recovered/Not Resolved]
  - Dizziness [Not Recovered/Not Resolved]
  - Pruritus [Unknown]
  - Urticaria [Recovered/Resolved]
  - Hypersensitivity [Recovering/Resolving]
  - Arthralgia [Not Recovered/Not Resolved]
  - Eosinophilic oesophagitis [Recovering/Resolving]
  - Therapeutic response shortened [Unknown]

NARRATIVE: CASE EVENT DATE: 20230101
